FAERS Safety Report 23449111 (Version 1)
Quarter: 2024Q1

REPORT INFORMATION
  Report Type: Spontaneous
  Country: US (occurrence: None)
  Receive Date: 20240128
  Receipt Date: 20240128
  Transmission Date: 20240410
  Serious: No
  Sender: FDA-Public Use
  Company Number: 2024A018533

PATIENT
  Sex: Female

DRUGS (1)
  1. BREZTRI [Suspect]
     Active Substance: BUDESONIDE\FORMOTEROL\GLYCOPYRROLATE
     Route: 055

REACTIONS (6)
  - COVID-19 [Unknown]
  - Oral candidiasis [Unknown]
  - Glucose tolerance impaired [Unknown]
  - Product use issue [Unknown]
  - Device use issue [Unknown]
  - Wrong technique in device usage process [Unknown]
